FAERS Safety Report 20129074 (Version 1)
Quarter: 2021Q4

REPORT INFORMATION
  Report Type: Report from Study
  Country: JP (occurrence: JP)
  Receive Date: 20211130
  Receipt Date: 20211130
  Transmission Date: 20220304
  Serious: Yes (Hospitalization)
  Sender: FDA-Public Use
  Company Number: JP-ORPHANEU-2018006966

PATIENT

DRUGS (32)
  1. CARBAGLU [Suspect]
     Active Substance: CARGLUMIC ACID
     Indication: Methylmalonic aciduria
     Dosage: 400 MILLIGRAM, DAILY
     Dates: start: 20171013, end: 20171110
  2. CARBAGLU [Suspect]
     Active Substance: CARGLUMIC ACID
     Dosage: 100 MILLIGRAM, QID
     Dates: start: 20171013
  3. METHYLCOBALAMIN [Concomitant]
     Active Substance: METHYLCOBALAMIN
     Indication: Methylmalonic aciduria
     Dosage: DOSE- 600 MG T.I.D. OF 500 MICROG T.I.D VIA GASTRIC TUBE
     Dates: start: 20171010, end: 20171110
  4. METHYLCOBALAMIN [Concomitant]
     Active Substance: METHYLCOBALAMIN
     Dosage: 500 MICROGRAM
     Dates: start: 20171010
  5. HICEE [ASCORBIC ACID] [Concomitant]
     Indication: Methylmalonic aciduria
     Dosage: 250 MG, TID VIA GASTRIC TUBE
     Dates: start: 20171010, end: 20171110
  6. HICEE [ASCORBIC ACID] [Concomitant]
     Dosage: 250 MILLIGRAM
     Dates: start: 20171010
  7. TOCOPHERYL NICOTINATE, D-.ALPHA. [Concomitant]
     Active Substance: TOCOPHERYL NICOTINATE, D-.ALPHA.
     Indication: Methylmalonic aciduria
     Dosage: 30 MG, TID VIA GASTRIC TUBE
     Dates: start: 20171010, end: 20171110
  8. TOCOPHERYL NICOTINATE, D-.ALPHA. [Concomitant]
     Active Substance: TOCOPHERYL NICOTINATE, D-.ALPHA.
     Dosage: 30 MICROGRAM
     Dates: start: 20171010
  9. DIETARY SUPPLEMENT\UBIDECARENONE [Concomitant]
     Active Substance: DIETARY SUPPLEMENT\UBIDECARENONE
     Indication: Methylmalonic aciduria
     Dosage: 10 MG, TID VIA GASTRIC TUBE
     Dates: start: 20171010, end: 20171110
  10. DIETARY SUPPLEMENT\UBIDECARENONE [Concomitant]
     Active Substance: DIETARY SUPPLEMENT\UBIDECARENONE
     Dosage: 10 MICROGRAM, TID
     Dates: start: 20171010
  11. BENFOTIAMINE [Concomitant]
     Active Substance: BENFOTIAMINE
     Indication: Methylmalonic aciduria
     Dosage: 25 MG, TID VIA GASTRIC TUBE
     Dates: start: 20171010, end: 20171110
  12. BENFOTIAMINE [Concomitant]
     Active Substance: BENFOTIAMINE
     Dosage: 25 MICROGRAM, TID
     Dates: start: 20171010
  13. BIOTIN [Concomitant]
     Active Substance: BIOTIN
     Indication: Methylmalonic aciduria
     Dosage: 1 MG, TID VIA GASTRIC TUBE
     Dates: start: 20171010, end: 20171110
  14. BIOTIN [Concomitant]
     Active Substance: BIOTIN
     Dosage: 1 MICROGRAM, TID
     Dates: start: 20171010
  15. GM [Concomitant]
     Indication: Infection prophylaxis
     Dosage: 6.6 MG, TID
     Dates: start: 20171010, end: 20171110
  16. BUPHENYL [Concomitant]
     Active Substance: SODIUM PHENYLBUTYRATE
     Indication: Disease complication
     Dosage: 600 MG, TID VIA GASTRUC TUBE
     Dates: start: 20171010, end: 20171110
  17. BUPHENYL [Concomitant]
     Active Substance: SODIUM PHENYLBUTYRATE
     Dosage: 600 MILLIGRAM
     Dates: start: 20171010, end: 20171012
  18. MICAFUNGIN SODIUM [Concomitant]
     Active Substance: MICAFUNGIN SODIUM
     Indication: Infection prophylaxis
     Dosage: 6 MG, QD
     Dates: start: 20171012, end: 20171110
  19. SODIUM BICARBONATE [Concomitant]
     Active Substance: SODIUM BICARBONATE
     Indication: Infection prophylaxis
     Dosage: 1 UNK, BID
     Dates: start: 20171030, end: 20171110
  20. SODIUM BICARBONATE [Concomitant]
     Active Substance: SODIUM BICARBONATE
     Indication: Disease complication
     Dosage: 1 GRAM
     Dates: start: 20171102
  21. SODIUM BICARBONATE [Concomitant]
     Active Substance: SODIUM BICARBONATE
     Dosage: 1 GRAM
     Route: 048
     Dates: start: 20171030, end: 20171101
  22. SODIUM BICARBONATE [Concomitant]
     Active Substance: SODIUM BICARBONATE
     Dosage: 0.5 GRAM
     Route: 048
     Dates: start: 20171102
  23. VANCOMYCIN                         /00314402/ [Concomitant]
     Indication: Infection prophylaxis
     Dosage: DOSE-0.055,BID
     Dates: start: 20171012, end: 20171110
  24. ARGI U [ARGININE HYDROCHLORIDE] [Concomitant]
     Indication: Hyperlactacidaemia
     Dosage: 750 MG, QD
     Dates: start: 20171011, end: 20171110
  25. ARGI U [ARGININE HYDROCHLORIDE] [Concomitant]
     Indication: Disease complication
     Dosage: 750 MILLIGRAM
     Dates: start: 20171011, end: 20171023
  26. MEROPENEM [Concomitant]
     Active Substance: MEROPENEM
     Indication: Infection prophylaxis
     Dosage: 40 MG, BID
     Dates: start: 20171011, end: 20171110
  27. AMPICILLIN [Concomitant]
     Active Substance: AMPICILLIN
     Indication: Product used for unknown indication
     Dosage: 100 MG, BID
     Route: 048
     Dates: start: 20171010, end: 20171110
  28. FRESMIN S [HYDROXOCOBALAMIN ACETATE] [Concomitant]
     Indication: Hyperlactacidaemia
     Dosage: 3 MG, TID
     Dates: start: 20171013, end: 20171110
  29. FRESMIN S [HYDROXOCOBALAMIN ACETATE] [Concomitant]
     Indication: Disease complication
     Dosage: 3 MILLIGRAM
     Dates: start: 20171013, end: 20171101
  30. HYCOBAL [COBAMAMIDE] [Concomitant]
     Indication: Disease complication
     Dosage: 100 MICROGRAM
     Route: 048
     Dates: start: 20171030
  31. PANVITAN [VITAMINS NOS] [Concomitant]
     Indication: Methylmalonic aciduria
     Dosage: 0.4 GRAM
     Dates: start: 20171022
  32. CARTINE L [Concomitant]
     Indication: Methylmalonic aciduria
     Dosage: 600 MICROGRAM
     Dates: start: 20211102

REACTIONS (3)
  - Cholestasis [Recovering/Resolving]
  - Anaemia [Not Recovered/Not Resolved]
  - Bacteraemia [Recovered/Resolved]

NARRATIVE: CASE EVENT DATE: 20171023
